FAERS Safety Report 6238191-2 (Version None)
Quarter: 2009Q2

REPORT INFORMATION
  Report Type: 
  Country: None (occurrence: None)
  Receive Date: 20090617
  Receipt Date: 20090617
  Transmission Date: 20091009
  Serious: No
  Sender: FDA-Public Use
  Company Number: None

PATIENT
  Age: 80 Year
  Sex: Female
  Weight: 78 kg

DRUGS (10)
  1. METHOTREXATE [Suspect]
     Indication: RHEUMATOID ARTHRITIS
     Dosage: 7.5 MG QW PO
     Route: 048
  2. FOSAMAX [Concomitant]
  3. ARMDEX [Concomitant]
  4. L-THYROINE [Concomitant]
  5. BISOPROLOL [Concomitant]
  6. FUMARATE/HCTZ [Concomitant]
  7. LISINOPRIL [Concomitant]
  8. LIPITOR [Concomitant]
  9. ASPIRIN [Concomitant]
  10. COSOPT [Concomitant]

REACTIONS (5)
  - DEHYDRATION [None]
  - DRUG TOXICITY [None]
  - EPISTAXIS [None]
  - MENTAL STATUS CHANGES [None]
  - PANCYTOPENIA [None]
